FAERS Safety Report 16072067 (Version 2)
Quarter: 2020Q3

REPORT INFORMATION
  Report Type: Report from Study
  Country: US (occurrence: US)
  Receive Date: 20190314
  Receipt Date: 20190513
  Transmission Date: 20201105
  Serious: Yes (Hospitalization)
  Sender: FDA-Public Use
  Company Number: US-JNJFOC-20190217305

PATIENT
  Age: 35 Year
  Sex: Male
  Weight: 92.99 kg

DRUGS (51)
  1. KETOROLAC [Concomitant]
     Active Substance: KETOROLAC TROMETHAMINE
     Indication: ELECTROCONVULSIVE THERAPY
     Route: 042
     Dates: start: 20190114, end: 20190114
  2. LITHIUM. [Concomitant]
     Active Substance: LITHIUM
     Route: 048
     Dates: start: 20190103, end: 20190123
  3. MIRTAZAPINE. [Concomitant]
     Active Substance: MIRTAZAPINE
     Route: 048
     Dates: start: 20190102, end: 20190102
  4. KETOROLAC [Concomitant]
     Active Substance: KETOROLAC TROMETHAMINE
     Indication: ELECTROCONVULSIVE THERAPY
     Route: 042
     Dates: start: 20190111, end: 20190111
  5. RITALIN [Concomitant]
     Active Substance: METHYLPHENIDATE HYDROCHLORIDE
     Route: 048
     Dates: start: 20181029, end: 20190101
  6. GABAPENTIN. [Concomitant]
     Active Substance: GABAPENTIN
     Indication: ANXIETY
     Route: 048
     Dates: start: 20190104
  7. QUETIAPINE. [Concomitant]
     Active Substance: QUETIAPINE
     Route: 048
     Dates: start: 20190106, end: 20190122
  8. METHOHEXITAL [Concomitant]
     Active Substance: METHOHEXITAL
     Indication: ELECTROCONVULSIVE THERAPY
     Route: 042
     Dates: start: 20190111, end: 20190111
  9. GABAPENTIN. [Concomitant]
     Active Substance: GABAPENTIN
     Indication: ANXIETY
     Route: 048
     Dates: start: 201812, end: 20190103
  10. CLONAZEPAM. [Concomitant]
     Active Substance: CLONAZEPAM
     Indication: ANXIETY
     Route: 048
     Dates: start: 20180924, end: 20190102
  11. VENLAFAXINE [Concomitant]
     Active Substance: VENLAFAXINE HYDROCHLORIDE
     Route: 048
  12. FLUOXETINE [Concomitant]
     Active Substance: FLUOXETINE HYDROCHLORIDE
     Route: 048
     Dates: start: 20190107, end: 20190118
  13. EFFEXOR [Concomitant]
     Active Substance: VENLAFAXINE HYDROCHLORIDE
     Route: 048
     Dates: start: 20190104, end: 20190107
  14. ZOLPIDEM [Concomitant]
     Active Substance: ZOLPIDEM TARTRATE
     Route: 048
     Dates: start: 20190102, end: 20190103
  15. METHOHEXITAL [Concomitant]
     Active Substance: METHOHEXITAL
     Indication: ELECTROCONVULSIVE THERAPY
     Route: 042
     Dates: start: 20190109, end: 20190109
  16. SUCCINYLCHOLINE [Concomitant]
     Active Substance: SUCCINYLCHOLINE
     Indication: ELECTROCONVULSIVE THERAPY
     Route: 042
     Dates: start: 20190111, end: 20190111
  17. ONDANSETRON [Concomitant]
     Active Substance: ONDANSETRON
     Indication: ELECTROCONVULSIVE THERAPY
     Route: 042
     Dates: start: 20190109, end: 20190109
  18. LITHIUM. [Concomitant]
     Active Substance: LITHIUM
     Route: 048
     Dates: start: 20181029, end: 20190102
  19. DIVALPROEX [Concomitant]
     Active Substance: DIVALPROEX SODIUM
     Route: 048
     Dates: start: 201812, end: 20190101
  20. MIRTAZAPINE. [Concomitant]
     Active Substance: MIRTAZAPINE
     Route: 048
     Dates: start: 20181124, end: 20190101
  21. VISTARIL [Concomitant]
     Active Substance: HYDROXYZINE PAMOATE
     Indication: ANXIETY
     Route: 048
     Dates: start: 20190103, end: 20190109
  22. MILK OF MAGNESIA [Concomitant]
     Active Substance: MAGNESIUM HYDROXIDE
     Indication: CONSTIPATION PROPHYLAXIS
     Route: 048
     Dates: start: 20190102, end: 20190109
  23. EFFEXOR [Concomitant]
     Active Substance: VENLAFAXINE HYDROCHLORIDE
     Route: 048
     Dates: start: 20190108, end: 20190116
  24. MIDAZOLAM HYDROCHLORIDE. [Concomitant]
     Active Substance: MIDAZOLAM HYDROCHLORIDE
     Indication: ELECTROCONVULSIVE THERAPY
     Route: 042
     Dates: start: 20190111, end: 20190111
  25. ONDANSETRON [Concomitant]
     Active Substance: ONDANSETRON
     Indication: ELECTROCONVULSIVE THERAPY
     Route: 042
     Dates: start: 20190114, end: 20190114
  26. ATORVASTIN [Concomitant]
     Active Substance: ATORVASTATIN
     Indication: HYPERCHOLESTEROLAEMIA
     Route: 048
     Dates: start: 20190103
  27. QUETIAPINE. [Concomitant]
     Active Substance: QUETIAPINE
     Route: 048
     Dates: start: 20190104, end: 20190106
  28. ZOLPIDEM [Concomitant]
     Active Substance: ZOLPIDEM TARTRATE
     Route: 048
     Dates: start: 20190104, end: 20190109
  29. ERGOCALCIFEROL. [Concomitant]
     Active Substance: ERGOCALCIFEROL
     Route: 048
     Dates: start: 20190111
  30. ESKETAMINE [Suspect]
     Active Substance: ESKETAMINE
     Indication: MAJOR DEPRESSION
     Route: 045
     Dates: start: 20190104, end: 20190107
  31. METOPROLOL TARTRATE. [Concomitant]
     Active Substance: METOPROLOL TARTRATE
     Indication: HYPERTENSION
     Route: 048
     Dates: start: 20190102
  32. DIVALPROEX [Concomitant]
     Active Substance: DIVALPROEX SODIUM
     Route: 048
     Dates: start: 20190102, end: 20190103
  33. VENLAFAXINE [Concomitant]
     Active Substance: VENLAFAXINE HYDROCHLORIDE
     Route: 048
     Dates: start: 20181029, end: 20190102
  34. OLANZAPINE. [Concomitant]
     Active Substance: OLANZAPINE
     Indication: ANXIETY
     Route: 048
     Dates: start: 20190102, end: 20190103
  35. EFFEXOR [Concomitant]
     Active Substance: VENLAFAXINE HYDROCHLORIDE
     Route: 048
     Dates: start: 20190103, end: 20190103
  36. MIDAZOLAM HYDROCHLORIDE. [Concomitant]
     Active Substance: MIDAZOLAM HYDROCHLORIDE
     Indication: ELECTROCONVULSIVE THERAPY
     Route: 042
     Dates: start: 20190109, end: 20190109
  37. SUCCINYLCHOLINE [Concomitant]
     Active Substance: SUCCINYLCHOLINE
     Indication: ELECTROCONVULSIVE THERAPY
     Route: 042
     Dates: start: 20190114, end: 20190114
  38. ESMOLOL [Concomitant]
     Active Substance: ESMOLOL HYDROCHLORIDE
     Indication: ELECTROCONVULSIVE THERAPY
     Route: 042
     Dates: start: 20190111, end: 20190111
  39. KETOROLAC [Concomitant]
     Active Substance: KETOROLAC TROMETHAMINE
     Indication: ELECTROCONVULSIVE THERAPY
     Route: 042
     Dates: start: 20190109, end: 20190109
  40. METOPROLOL TARTRATE. [Concomitant]
     Active Substance: METOPROLOL TARTRATE
     Indication: HYPERTENSION
     Route: 048
     Dates: start: 201811, end: 20190102
  41. LITHIUM. [Concomitant]
     Active Substance: LITHIUM
     Route: 048
     Dates: start: 20190104, end: 20190108
  42. ATORVASTIN [Concomitant]
     Active Substance: ATORVASTATIN
     Indication: HYPERCHOLESTEROLAEMIA
     Route: 048
     Dates: start: 20180222, end: 20190102
  43. VISTARIL [Concomitant]
     Active Substance: HYDROXYZINE PAMOATE
     Indication: ANXIETY
     Route: 048
     Dates: start: 20190104, end: 20190109
  44. QUETIAPINE. [Concomitant]
     Active Substance: QUETIAPINE
     Route: 048
     Dates: start: 20190102, end: 20190103
  45. METHOHEXITAL [Concomitant]
     Active Substance: METHOHEXITAL
     Indication: ELECTROCONVULSIVE THERAPY
     Route: 042
     Dates: start: 20190114, end: 20190114
  46. MIDAZOLAM HYDROCHLORIDE. [Concomitant]
     Active Substance: MIDAZOLAM HYDROCHLORIDE
     Indication: ELECTROCONVULSIVE THERAPY
     Route: 042
     Dates: start: 20190114, end: 20190114
  47. ESMOLOL [Concomitant]
     Active Substance: ESMOLOL HYDROCHLORIDE
     Indication: ELECTROCONVULSIVE THERAPY
     Route: 042
     Dates: start: 20190109, end: 20190109
  48. ESKETAMINE [Suspect]
     Active Substance: ESKETAMINE
     Indication: SUICIDAL IDEATION
     Route: 045
     Dates: start: 20190104, end: 20190107
  49. ONDANSETRON [Concomitant]
     Active Substance: ONDANSETRON
     Indication: ELECTROCONVULSIVE THERAPY
     Route: 042
     Dates: start: 20190111, end: 20190111
  50. IBUPROFEN. [Concomitant]
     Active Substance: IBUPROFEN
     Indication: PAIN PROPHYLAXIS
     Route: 048
     Dates: start: 20190102, end: 20190109
  51. SUCCINYLCHOLINE [Concomitant]
     Active Substance: SUCCINYLCHOLINE
     Indication: ELECTROCONVULSIVE THERAPY
     Route: 042
     Dates: start: 20190109, end: 20190109

REACTIONS (1)
  - Suicidal ideation [Recovered/Resolved]

NARRATIVE: CASE EVENT DATE: 20190117
